FAERS Safety Report 16712690 (Version 1)
Quarter: 2019Q3

REPORT INFORMATION
  Report Type: Report from Study
  Country: GT (occurrence: GT)
  Receive Date: 20190816
  Receipt Date: 20190816
  Transmission Date: 20191004
  Serious: Yes (Other)
  Sender: FDA-Public Use
  Company Number: PHHY2019GT190321

PATIENT
  Age: 73 Year
  Sex: Female

DRUGS (1)
  1. EXFORGE [Suspect]
     Active Substance: AMLODIPINE BESYLATE\VALSARTAN
     Indication: PRODUCT USED FOR UNKNOWN INDICATION
     Dosage: (AMLODIPINE 5 MG, VALSARTAN 320 MG)
     Route: 065

REACTIONS (6)
  - Condition aggravated [Unknown]
  - Diabetes mellitus [Unknown]
  - Brain injury [Unknown]
  - Tremor [Unknown]
  - Blood pressure increased [Recovered/Resolved]
  - Aphasia [Unknown]
